FAERS Safety Report 10275062 (Version 2)
Quarter: 2014Q3

REPORT INFORMATION
  Report Type: Report from Study
  Country: CN (occurrence: CN)
  Receive Date: 20140703
  Receipt Date: 20140703
  Transmission Date: 20150326
  Serious: Yes (Death, Hospitalization)
  Sender: FDA-Public Use
  Company Number: CN-ACCORD-024481

PATIENT
  Age: 56 Year
  Sex: Male

DRUGS (2)
  1. MYCOPHENOLIC ACID [Suspect]
     Active Substance: MYCOPHENOLIC ACID
     Indication: MICROSCOPIC POLYANGIITIS
  2. PREDNISONE. [Suspect]
     Active Substance: PREDNISONE
     Indication: MICROSCOPIC POLYANGIITIS
     Route: 048

REACTIONS (3)
  - Pneumocystis jirovecii pneumonia [Fatal]
  - Lymphopenia [Unknown]
  - Candida infection [Unknown]
